FAERS Safety Report 5294508-7 (Version None)
Quarter: 2007Q2

REPORT INFORMATION
  Report Type: 
  Country: None (occurrence: None)
  Receive Date: 20070406
  Receipt Date: 20070327
  Transmission Date: 20071010
  Serious: Yes (Hospitalization)
  Sender: FDA-Public Use
  Company Number: CERZ-11589

PATIENT
  Age: 52 Year
  Sex: Female

DRUGS (1)
  1. CEREZYME [Suspect]
     Indication: GAUCHER'S DISEASE
     Dosage: 1600 UNITS Q2WKS IV
     Route: 042
     Dates: start: 19970506

REACTIONS (3)
  - ARTHROPATHY [None]
  - HIP ARTHROPLASTY [None]
  - SURGICAL PROCEDURE REPEATED [None]
